FAERS Safety Report 6854626-6 (Version None)
Quarter: 2010Q3

REPORT INFORMATION
  Report Type: 
  Country: None (occurrence: None)
  Receive Date: 20100717
  Receipt Date: 20080122
  Transmission Date: 20110219
  Serious: No
  Sender: FDA-Public Use
  Company Number: US-PFIZER INC-2008003616

PATIENT
  Sex: Female
  Weight: 62.7 kg

DRUGS (4)
  1. CHANTIX [Suspect]
     Indication: SMOKING CESSATION THERAPY
     Dates: start: 20070917
  2. SERTRALINE HCL [Suspect]
     Indication: DEPRESSION
     Dates: start: 20080104
  3. PRAVACHOL [Concomitant]
  4. MICARDIS [Concomitant]

REACTIONS (6)
  - DEPRESSION [None]
  - INSOMNIA [None]
  - NAUSEA [None]
  - NERVOUSNESS [None]
  - TENSION [None]
  - TOBACCO WITHDRAWAL SYMPTOMS [None]
